FAERS Safety Report 9536437 (Version 1)
Quarter: 2013Q1

REPORT INFORMATION
  Report Type: Spontaneous
  Country: US (occurrence: None)
  Receive Date: 20130326
  Receipt Date: 20130326
  Transmission Date: 20140127
  Serious: Yes (Other)
  Sender: FDA-Public Use
  Company Number: US-SEPTODONT-201200643

PATIENT
  Age: 42 Year
  Sex: Male

DRUGS (3)
  1. LIDOCAINE HYDROCHLORIDE 2% WITH EPINEPHRINE (WATSON LABORATORIES) [Suspect]
     Indication: LOCAL ANAESTHESIA
     Dosage: 6 CARTRIDGES DENTAL
     Dates: start: 20120510, end: 20120510
  2. SEPTOCAINE WITH EPINEPHRINE [Suspect]
     Dosage: 2.3 CARTRIDGES DENTAL
     Dates: start: 20120510, end: 20120510
  3. TAC 20% ALTERNATE TOPICAL ANESTHETIC GEL (LIDOCAINE; TETRACAINE; PHENYLEPHRINE) [Concomitant]

REACTIONS (1)
  - Respiratory depression [None]
